FAERS Safety Report 7905835-6 (Version None)
Quarter: 2011Q4

REPORT INFORMATION
  Report Type: 
  Country: None (occurrence: None)
  Receive Date: 20111108
  Receipt Date: 20111103
  Transmission Date: 20120403
  Serious: Yes (Hospitalization, Other)
  Sender: FDA-Public Use
  Company Number: ADR-2011-11051

PATIENT
  Sex: Male

DRUGS (2)
  1. BACLOFEN [Suspect]
     Indication: MUSCLE SPASTICITY
     Dosage: 681.6 MCG, DAILY
     Route: 037
  2. BACLOFEN [Suspect]
     Indication: CEREBROVASCULAR ACCIDENT
     Dosage: 681.6 MCG, DAILY
     Route: 037

REACTIONS (8)
  - ERYTHEMA [None]
  - ASTHENIA [None]
  - FALL [None]
  - CONDITION AGGRAVATED [None]
  - MUSCLE SPASTICITY [None]
  - TRANSIENT ISCHAEMIC ATTACK [None]
  - INJURY [None]
  - LETHARGY [None]
